FAERS Safety Report 6703214-0 (Version None)
Quarter: 2010Q2

REPORT INFORMATION
  Report Type: 
  Country: None (occurrence: None)
  Receive Date: 20100430
  Receipt Date: 20100415
  Transmission Date: 20101027
  Serious: Yes (Hospitalization, Other)
  Sender: FDA-Public Use
  Company Number: US-JNJFOC-20100206697

PATIENT
  Age: 60 Year
  Sex: Female
  Weight: 40.37 kg

DRUGS (21)
  1. EXTRA STRENGTH TYLENOL [Suspect]
     Indication: FIBROMYALGIA
     Route: 048
  2. EXTRA STRENGTH TYLENOL [Suspect]
     Route: 048
  3. EXTRA STRENGTH TYLENOL [Suspect]
     Indication: ANALGESIC THERAPY
     Route: 048
  4. EXTRA STRENGTH TYLENOL [Suspect]
     Route: 048
  5. EXTRA STRENGTH TYLENOL [Suspect]
     Indication: ARTHRITIS
     Route: 048
  6. EXTRA STRENGTH TYLENOL [Suspect]
     Route: 048
  7. FISH OIL [Concomitant]
  8. PREVACID [Concomitant]
     Indication: GASTROOESOPHAGEAL REFLUX DISEASE
  9. IMODIUM [Concomitant]
  10. BENTYL [Concomitant]
     Indication: ABDOMINAL RIGIDITY
  11. CALCIUM [Concomitant]
  12. DONNATAL [Concomitant]
     Indication: ABDOMINAL RIGIDITY
  13. DONNATAL [Concomitant]
     Indication: GASTROOESOPHAGEAL REFLUX DISEASE
  14. BENADRYL [Concomitant]
  15. PROBIOTIC [Concomitant]
  16. OTHER ANTIDIARRHOEALS [Concomitant]
     Indication: DIARRHOEA
  17. PLAQUENIL [Concomitant]
     Indication: RHEUMATOID ARTHRITIS
  18. CORTISONE [Concomitant]
     Indication: RHEUMATOID ARTHRITIS
  19. ALL OTHER THERAPEUTIC PRODUCTS [Concomitant]
     Indication: ABDOMINAL RIGIDITY
  20. MAALOX [Concomitant]
  21. PRILOSEC [Concomitant]

REACTIONS (19)
  - ABASIA [None]
  - ABDOMINAL DISTENSION [None]
  - ABDOMINAL PAIN [None]
  - ABDOMINAL PAIN UPPER [None]
  - ARTHRALGIA [None]
  - DIARRHOEA [None]
  - EPISTAXIS [None]
  - GASTRITIS [None]
  - HEADACHE [None]
  - HEART RATE INCREASED [None]
  - NAUSEA [None]
  - OROPHARYNGEAL PAIN [None]
  - PAIN [None]
  - PRODUCT ODOUR ABNORMAL [None]
  - PRODUCT TASTE ABNORMAL [None]
  - PYREXIA [None]
  - RASH [None]
  - TREMOR [None]
  - VISUAL IMPAIRMENT [None]
